FAERS Safety Report 6950657-6 (Version None)
Quarter: 2010Q3

REPORT INFORMATION
  Report Type: 
  Country: None (occurrence: None)
  Receive Date: 20100828
  Receipt Date: 20100217
  Transmission Date: 20110219
  Serious: No
  Sender: FDA-Public Use
  Company Number: US-ABBOTT-10P-163-0628035-00

PATIENT
  Sex: Female
  Weight: 78.996 kg

DRUGS (5)
  1. NIASPAN [Suspect]
     Indication: BLOOD CHOLESTEROL INCREASED
     Dates: start: 20100203
  2. QUETIAPINE [Suspect]
     Indication: DEPRESSION
  3. AMLODIPINE BESYLATE [Concomitant]
     Indication: PRODUCT USED FOR UNKNOWN INDICATION
  4. ESCITALOPRAM OXALATE [Concomitant]
     Indication: DEPRESSION
  5. BYSTOLIC [Concomitant]
     Indication: HYPERTENSION

REACTIONS (1)
  - PRURITUS [None]
